FAERS Safety Report 13361498 (Version 5)
Quarter: 2017Q2

REPORT INFORMATION
  Report Type: Report from Study
  Country: DE (occurrence: DE)
  Receive Date: 20170323
  Receipt Date: 20170529
  Transmission Date: 20170830
  Serious: Yes (Death, Life-Threatening, Hospitalization, Other)
  Sender: FDA-Public Use
  Company Number: DE-ROCHE-1907780

PATIENT
  Age: 78 Year
  Sex: Male
  Weight: 80 kg

DRUGS (6)
  1. OBINUTUZUMAB [Suspect]
     Active Substance: OBINUTUZUMAB
     Indication: DIFFUSE LARGE B-CELL LYMPHOMA
     Dosage: ON DAY 1, 8, 15 OF CYCLE ONE AND DAY 1 OF SUBSEQUENT CYCLES (AS PER PROTOCOL)?ON 01/MAR/2017, MOST R
     Route: 042
     Dates: start: 20170201, end: 20170301
  2. XARELTO [Concomitant]
     Active Substance: RIVAROXABAN
     Indication: PULMONARY EMBOLISM
     Route: 065
     Dates: start: 20170314
  3. RAMIPRIL. [Concomitant]
     Active Substance: RAMIPRIL
     Indication: HYPERTENSION
     Dosage: 5/25
     Route: 065
  4. PIXANTRONE [Suspect]
     Active Substance: PIXANTRONE
     Indication: DIFFUSE LARGE B-CELL LYMPHOMA
     Dosage: 50 MG/M2 ON DAY 1,8,15 OF EACH 28 DAY CYCLE (AS PER PROTOCOL)?ON 08/MAR/2017, MOST RECENT DOSE 100MG
     Route: 042
     Dates: start: 20170201, end: 20170308
  5. VIMPAT [Concomitant]
     Active Substance: LACOSAMIDE
  6. HYDROCHLOROTHIAZIDE. [Concomitant]
     Active Substance: HYDROCHLOROTHIAZIDE
     Route: 065

REACTIONS (4)
  - Neutropenia [Recovered/Resolved]
  - Pulmonary embolism [Fatal]
  - Pneumonia [Not Recovered/Not Resolved]
  - Leukopenia [Recovered/Resolved]

NARRATIVE: CASE EVENT DATE: 20170215
